FAERS Safety Report 10210298 (Version 1)
Quarter: 2014Q2

REPORT INFORMATION
  Report Type: Report from Study
  Country: US (occurrence: US)
  Receive Date: 20140602
  Receipt Date: 20140602
  Transmission Date: 20141212
  Serious: Yes (Hospitalization)
  Sender: FDA-Public Use
  Company Number: US-DENDREON CORPORATION-2014PROUSA03758

PATIENT
  Age: 71 Year
  Sex: Male
  Weight: 90 kg

DRUGS (13)
  1. SIPULEUCEL-T [Suspect]
     Indication: PROSTATE CANCER METASTATIC
     Dosage: 250 ML, SINGLE
     Route: 042
     Dates: start: 20131028, end: 20131028
  2. SIPULEUCEL-T [Suspect]
     Dosage: 250 ML, SINGLE
     Route: 042
     Dates: start: 20131111, end: 20131111
  3. SIPULEUCEL-T [Suspect]
     Dosage: 250 ML, SINGLE
     Route: 042
     Dates: start: 20131209, end: 20131209
  4. ENZALUTAMIDE [Concomitant]
     Indication: PROSTATE CANCER
     Dosage: 160 MG, UNK
     Dates: start: 20130909
  5. MORPHINE SULFATE [Concomitant]
     Indication: BACK PAIN
     Dosage: 60 MG, UNK
  6. B COMPLEX [Concomitant]
     Indication: SUPPLEMENTATION THERAPY
     Dosage: 1 TABLETS, UNK
  7. CALCIUM [Concomitant]
     Indication: SUPPLEMENTATION THERAPY
     Dosage: 2000 MG, UNK
  8. VITAMIN D3 [Concomitant]
     Indication: SUPPLEMENTATION THERAPY
     Dosage: 4000 UNITS, UNK
  9. SPIRIVA [Concomitant]
     Indication: CHRONIC OBSTRUCTIVE PULMONARY DISEASE
     Dosage: 1 DF, UNK
  10. LIPITOR [Concomitant]
     Indication: HYPERCHOLESTEROLAEMIA
     Dosage: 10 MG, UNK
  11. BENICAR [Concomitant]
     Indication: HYPERTENSION
     Dosage: 20 MG, UNK
  12. VITAMIN E [Concomitant]
     Indication: SUPPLEMENTATION THERAPY
  13. LUPRON [Concomitant]
     Indication: PRODUCT USED FOR UNKNOWN INDICATION
     Dosage: UNK
     Dates: start: 20120606

REACTIONS (1)
  - Pulmonary embolism [Recovered/Resolved with Sequelae]
